FAERS Safety Report 14970063 (Version 1)
Quarter: 2018Q2

REPORT INFORMATION
  Report Type: Spontaneous
  Country: US (occurrence: US)
  Receive Date: 20180530
  Receipt Date: 20180530
  Transmission Date: 20180711
  Serious: Yes (Other)
  Sender: FDA-Public Use
  Company Number: US-KADMON PHARMACEUTICALS, LLC-KAD201708-000904

PATIENT
  Age: 57 Year
  Sex: Female

DRUGS (4)
  1. RIBASPHERE [Suspect]
     Active Substance: RIBAVIRIN
     Indication: CHRONIC HEPATITIS C
     Dates: start: 20110415
  2. RIBASPHERE [Suspect]
     Active Substance: RIBAVIRIN
  3. PEGASYS [Suspect]
     Active Substance: PEGINTERFERON ALFA-2A
     Indication: CHRONIC HEPATITIS C
  4. RIBASPHERE [Suspect]
     Active Substance: RIBAVIRIN

REACTIONS (2)
  - Anaemia [Unknown]
  - Platelet count decreased [Unknown]
